FAERS Safety Report 19681758 (Version 1)
Quarter: 2021Q3

REPORT INFORMATION
  Report Type: Report from Study
  Country: US (occurrence: US)
  Receive Date: 20210810
  Receipt Date: 20210810
  Transmission Date: 20211014
  Serious: Yes (Other)
  Sender: FDA-Public Use
  Company Number: US-JNJFOC-20210800657

PATIENT
  Age: 45 Year
  Sex: Male

DRUGS (4)
  1. SPRAVATO [Suspect]
     Active Substance: ESKETAMINE
     Dosage: X 3 DOSES
     Dates: start: 20210621, end: 20210628
  2. SPRAVATO [Suspect]
     Active Substance: ESKETAMINE
     Dosage: UNKNOWN DOSE
     Dates: start: 20210630, end: 20210630
  3. SPRAVATO [Suspect]
     Active Substance: ESKETAMINE
     Indication: DEPRESSION
     Dosage: X 2 DOSES
     Dates: start: 20210614, end: 20210616
  4. SPRAVATO [Suspect]
     Active Substance: ESKETAMINE
     Dosage: X 5 DOSES
     Dates: start: 20210709, end: 20210728

REACTIONS (3)
  - Feeling abnormal [Unknown]
  - Fear [Unknown]
  - Cerebrovascular accident [Unknown]

NARRATIVE: CASE EVENT DATE: 20210730
